FAERS Safety Report 13558974 (Version 1)
Quarter: 2017Q2

REPORT INFORMATION
  Report Type: Spontaneous
  Country: US (occurrence: US)
  Receive Date: 20170518
  Receipt Date: 20170518
  Transmission Date: 20170830
  Serious: No
  Sender: FDA-Public Use
  Company Number: US-APOTEX-2016AP013027

PATIENT
  Age: 82 Year
  Sex: Female

DRUGS (2)
  1. IMIQUIMOD. [Suspect]
     Active Substance: IMIQUIMOD
     Indication: MALIGNANT MELANOMA OF EYELID
     Dosage: DAILY
     Route: 061
  2. ERYTHROMYCIN. [Concomitant]
     Active Substance: ERYTHROMYCIN
     Indication: PROPHYLAXIS
     Dosage: UNK
     Route: 047

REACTIONS (3)
  - Erythema [Unknown]
  - Product use in unapproved indication [Unknown]
  - Discomfort [Unknown]
